FAERS Safety Report 4662685-4 (Version None)
Quarter: 2005Q2

REPORT INFORMATION
  Report Type: 
  Country: None (occurrence: None)
  Receive Date: 20050516
  Receipt Date: 20050504
  Transmission Date: 20051028
  Serious: Yes (Hospitalization)
  Sender: FDA-Public Use
  Company Number: US-GLAXOSMITHKLINE-A0557263A

PATIENT
  Sex: Male

DRUGS (6)
  1. WELLBUTRIN [Suspect]
     Indication: DEPRESSION
     Dosage: 100MG THREE TIMES PER DAY
     Route: 048
     Dates: start: 19920101
  2. PAXIL [Suspect]
     Indication: DEPRESSION
     Route: 048
  3. ATENOLOL [Concomitant]
  4. PREVACID [Concomitant]
  5. LOTREL [Concomitant]
  6. LIPITOR [Concomitant]

REACTIONS (7)
  - COLECTOMY PARTIAL [None]
  - CORONARY ARTERY SURGERY [None]
  - DIARRHOEA [None]
  - DIVERTICULITIS [None]
  - DRUG INEFFECTIVE [None]
  - MYOCARDIAL INFARCTION [None]
  - PNEUMONIA [None]
